FAERS Safety Report 4565045-X (Version None)
Quarter: 2005Q1

REPORT INFORMATION
  Report Type: 
  Country: None (occurrence: None)
  Receive Date: 20050126
  Receipt Date: 20040414
  Transmission Date: 20050727
  Serious: Yes (Hospitalization)
  Sender: FDA-Public Use
  Company Number: 2004025652

PATIENT
  Age: 17 Year
  Sex: Female

DRUGS (4)
  1. ZIPRASIDONE (CAPS) (ZIPRASIDONE) [Suspect]
     Indication: MAJOR DEPRESSION
     Dosage: 40 MG (1 IN 1 D), ORAL
     Route: 048
     Dates: start: 20031201
  2. ZIPRASIDONE (CAPS) (ZIPRASIDONE) [Suspect]
     Indication: PERSONALITY DISORDER
     Dosage: 40 MG (1 IN 1 D), ORAL
     Route: 048
     Dates: start: 20031201
  3. ZIPRASIDONE (CAPS) (ZIPRASIDONE) [Suspect]
     Indication: SCHIZOPHRENIA
     Dosage: 40 MG (1 IN 1 D), ORAL
     Route: 048
     Dates: start: 20031201
  4. ETHANOL (ETHANOL) [Suspect]
     Indication: ILL-DEFINED DISORDER
     Dates: start: 20040316

REACTIONS (1)
  - ALCOHOL POISONING [None]
